FAERS Safety Report 5689704-0 (Version None)
Quarter: 2008Q1

REPORT INFORMATION
  Report Type: 
  Country: None (occurrence: None)
  Receive Date: 20080328
  Receipt Date: 20080317
  Transmission Date: 20080703
  Serious: Yes (Other)
  Sender: FDA-Public Use
  Company Number: GXKR2008GB02743

PATIENT
  Age: 77 Year
  Sex: Male
  Weight: 74 kg

DRUGS (4)
  1. AMLODIPINE [Suspect]
     Indication: HYPERTENSION
     Dosage: 10 MG, ORAL
     Route: 048
     Dates: start: 20070913, end: 20080201
  2. DOXAZOSIN (DOXAZOSIN) [Concomitant]
  3. RAMIPIRIL (RAMIPRIL) [Concomitant]
  4. SIMVASTATIN [Concomitant]

REACTIONS (4)
  - ABDOMINAL PAIN [None]
  - NEPHRITIC SYNDROME [None]
  - OEDEMA PERIPHERAL [None]
  - SCROTAL OEDEMA [None]
